FAERS Safety Report 8537431-4 (Version None)
Quarter: 2012Q3

REPORT INFORMATION
  Report Type: 
  Country: None (occurrence: None)
  Receive Date: 20120725
  Receipt Date: 20120719
  Transmission Date: 20120928
  Serious: Yes (Hospitalization)
  Sender: FDA-Public Use
  Company Number: FR-PFIZER INC-2012048925

PATIENT
  Age: 60 Year
  Sex: Female

DRUGS (6)
  1. EPIRUBICIN HYDROCHLORIDE [Suspect]
     Indication: BREAST CANCER
     Dosage: UNK
  2. TAMOXIFEN [Suspect]
     Indication: BREAST CANCER
     Dosage: UNK
  3. FLUOROURACIL [Suspect]
     Indication: BREAST CANCER
     Dosage: UNK
  4. CYCLOPHOSPHAMIDE [Suspect]
     Indication: BREAST CANCER
     Dosage: UNK
  5. ARIMIDEX [Suspect]
     Indication: BREAST CANCER
     Dosage: UNK
  6. AROMASIN [Suspect]
     Indication: BREAST CANCER
     Dosage: 25 MG, UNK
     Dates: end: 20101001

REACTIONS (1)
  - PULMONARY HYPERTENSION [None]
